FAERS Safety Report 13194054 (Version 1)
Quarter: 2017Q1

REPORT INFORMATION
  Report Type: Spontaneous
  Country: US (occurrence: US)
  Receive Date: 20170207
  Receipt Date: 20170207
  Transmission Date: 20170428
  Serious: No
  Sender: FDA-Public Use
  Company Number: US-009507513-1701USA010888

PATIENT
  Age: 14 Year
  Sex: Female
  Weight: 43.08 kg

DRUGS (1)
  1. NEXPLANON [Suspect]
     Active Substance: ETONOGESTREL
     Indication: CONTRACEPTION
     Dosage: 1 DF, EVERY THREE YEARS
     Route: 059
     Dates: start: 20161014

REACTIONS (3)
  - Menorrhagia [Not Recovered/Not Resolved]
  - Drug administered to patient of inappropriate age [Unknown]
  - Fatigue [Unknown]

NARRATIVE: CASE EVENT DATE: 2016
